FAERS Safety Report 8115302-5 (Version None)
Quarter: 2012Q1

REPORT INFORMATION
  Report Type: 
  Country: None (occurrence: None)
  Receive Date: 20120206
  Receipt Date: 20120130
  Transmission Date: 20120608
  Serious: Yes (Other)
  Sender: FDA-Public Use
  Company Number: US-JNJFOC-20120200731

PATIENT
  Sex: Female

DRUGS (3)
  1. XARELTO [Suspect]
     Indication: PRODUCT USED FOR UNKNOWN INDICATION
     Route: 065
  2. ANTIDEPRESSANT MEDICATION, NOS [Concomitant]
     Indication: DEPRESSION
     Route: 065
  3. NUCYNTA [Suspect]
     Indication: PAIN
     Route: 065
     Dates: start: 20120101, end: 20120101

REACTIONS (1)
  - PSYCHOTIC DISORDER [None]
